FAERS Safety Report 6184844-4 (Version None)
Quarter: 2009Q2

REPORT INFORMATION
  Report Type: 
  Country: None (occurrence: None)
  Receive Date: 20090508
  Receipt Date: 20090504
  Transmission Date: 20091009
  Serious: Yes (Life-Threatening, Hospitalization)
  Sender: FDA-Public Use
  Company Number: US-GENENTECH-278998

PATIENT
  Sex: Female
  Weight: 87.528 kg

DRUGS (12)
  1. XOLAIR [Suspect]
     Indication: ASTHMA
     Dosage: 150 MG, 1/MONTH
     Route: 058
     Dates: start: 20080603
  2. BACLOFEN [Concomitant]
     Indication: DRUG USE FOR UNKNOWN INDICATION
  3. GABAPENTIN [Concomitant]
     Indication: DRUG USE FOR UNKNOWN INDICATION
     Dosage: 800 MG, BID
  4. OXYCODONE HCL [Concomitant]
     Indication: DRUG USE FOR UNKNOWN INDICATION
  5. NEXIUM [Concomitant]
     Indication: DRUG USE FOR UNKNOWN INDICATION
  6. SYNTHROID [Concomitant]
     Indication: DRUG USE FOR UNKNOWN INDICATION
     Dosage: 100 A?G, QD
  7. ADVAIR HFA [Concomitant]
     Indication: DRUG USE FOR UNKNOWN INDICATION
     Dosage: UNK
  8. DUONEB [Concomitant]
     Indication: DRUG USE FOR UNKNOWN INDICATION
     Dosage: UNK
  9. LASIX [Concomitant]
     Indication: DRUG USE FOR UNKNOWN INDICATION
     Dosage: 40 MG, 4/WEEK
     Route: 048
  10. MULTIVITAMIN (UNK INGREDIENTS) [Concomitant]
     Indication: DRUG USE FOR UNKNOWN INDICATION
     Dosage: UNK
  11. OXYCODONE HCL [Concomitant]
     Indication: DRUG USE FOR UNKNOWN INDICATION
     Dosage: 15 MG, PRN
  12. ACETYLSALICYLIC ACID [Concomitant]
     Dosage: 81 MG, QD

REACTIONS (1)
  - ASTHMA [None]
